FAERS Safety Report 19343955 (Version 2)
Quarter: 2021Q2

REPORT INFORMATION
  Report Type: Report from Study
  Country: NL (occurrence: NL)
  Receive Date: 20210530
  Receipt Date: 20210604
  Transmission Date: 20210717
  Serious: Yes (Hospitalization)
  Sender: FDA-Public Use
  Company Number: NL-ROCHE-2837293

PATIENT
  Age: 40 Year
  Sex: Male

DRUGS (6)
  1. RIZATRIPTAN. [Concomitant]
     Active Substance: RIZATRIPTAN
     Dosage: 2DD 10MQ ZN
  2. IBUPROFEN;PARACETAMOL [Concomitant]
  3. OXYCODON [Concomitant]
     Active Substance: OXYCODONE
     Dosage: 2DD 5MG ZN
  4. METOCLOPRAMIDE. [Concomitant]
     Active Substance: METOCLOPRAMIDE
     Dosage: 3DD 10MG ZN
  5. ATEZOLIZUMAB. [Suspect]
     Active Substance: ATEZOLIZUMAB
     Indication: TRIPLE NEGATIVE BREAST CANCER
     Dosage: ON 19/MAY/2021, HE RECEIVED MOST CURRENT TREATMENT /ADMINISTRATION OF ATEZOLIZUMAB PRIOR TO ONSET OF
     Route: 041
     Dates: start: 20210423
  6. PACLITAXEL. [Suspect]
     Active Substance: PACLITAXEL
     Indication: TRIPLE NEGATIVE BREAST CANCER
     Dosage: ON 19/MAY/2021, HE RECEIVED MOST CURRENT TREATMENT /ADMINISTRATION OF PACLITAXEL PRIOR TO ONSET OF S
     Route: 042
     Dates: start: 20210423

REACTIONS (1)
  - Appendicitis [Recovered/Resolved]

NARRATIVE: CASE EVENT DATE: 20210523
